FAERS Safety Report 14073726 (Version 1)
Quarter: 2017Q4

REPORT INFORMATION
  Report Type: Spontaneous
  Country: US (occurrence: US)
  Receive Date: 20171010
  Receipt Date: 20171010
  Transmission Date: 20180321
  Serious: No
  Sender: FDA-Public Use
  Company Number: US-JNJFOC-20170905788

PATIENT
  Age: 97 Year
  Sex: Female
  Weight: 52.16 kg

DRUGS (2)
  1. TYLENOL EXTRA STRENGTH [Suspect]
     Active Substance: ACETAMINOPHEN
     Indication: ANALGESIC THERAPY
     Dosage: TAKING 1 OR 2 CAPLETS AT A TIME, INCLUDING 2 CAPLETS BEFORE GOING TO BED
     Route: 048
  2. TYLENOL EXTRA STRENGTH [Suspect]
     Active Substance: ACETAMINOPHEN
     Indication: ANALGESIC THERAPY
     Dosage: DISCONTINUED USE BEFORE BED TIME
     Route: 048

REACTIONS (3)
  - Incorrect dose administered [Unknown]
  - Nightmare [Unknown]
  - Insomnia [Unknown]
